FAERS Safety Report 5596389-0 (Version None)
Quarter: 2008Q1

REPORT INFORMATION
  Report Type: 
  Country: None (occurrence: None)
  Receive Date: 20080118
  Receipt Date: 20080110
  Transmission Date: 20080703
  Serious: Yes (Death, Hospitalization)
  Sender: FDA-Public Use
  Company Number: BR-PFIZER INC-2008003174

PATIENT
  Age: 78 Year
  Sex: Female

DRUGS (6)
  1. REVATIO [Suspect]
     Indication: PULMONARY HYPERTENSION
     Route: 048
     Dates: start: 20040101, end: 20071001
  2. REVATIO [Suspect]
     Indication: SYSTEMIC SCLEROSIS
  3. UNSPECIFIED ORAL ANTICOAGULANT [Concomitant]
     Route: 048
  4. UNSPECIFIED BRONCHODILATOR [Concomitant]
  5. UNSPECIFIED DIURETIC [Concomitant]
  6. UNSPECIFIED CALCIUM BLOCKER [Concomitant]

REACTIONS (2)
  - HIP FRACTURE [None]
  - PNEUMONIA [None]
